FAERS Safety Report 21633989 (Version 1)
Quarter: 2022Q4

REPORT INFORMATION
  Report Type: Spontaneous
  Country: PT (occurrence: PT)
  Receive Date: 20221123
  Receipt Date: 20221123
  Transmission Date: 20230113
  Serious: Yes (Hospitalization, Other)
  Sender: FDA-Public Use
  Company Number: PT-VIIV HEALTHCARE LIMITED-PT2022EME171752

PATIENT

DRUGS (1)
  1. ABACAVIR SULFATE\DOLUTEGRAVIR SODIUM\LAMIVUDINE [Suspect]
     Active Substance: ABACAVIR SULFATE\DOLUTEGRAVIR SODIUM\LAMIVUDINE
     Indication: HIV infection
     Dosage: UNK
     Dates: start: 2018

REACTIONS (13)
  - Acute myocardial infarction [Recovered/Resolved]
  - Kaposi^s sarcoma AIDS related [Unknown]
  - Human herpesvirus 8 infection [Unknown]
  - Pain [Recovered/Resolved]
  - Nausea [Unknown]
  - Myocardial necrosis marker increased [Recovered/Resolved]
  - Electrocardiogram ST segment elevation [Recovered/Resolved]
  - Skin hyperpigmentation [Unknown]
  - Skin lesion [Unknown]
  - Condition aggravated [Unknown]
  - Skin plaque [Unknown]
  - Latent syphilis [Unknown]
  - Treatment noncompliance [Unknown]

NARRATIVE: CASE EVENT DATE: 20200101
